FAERS Safety Report 8614073-3 (Version None)
Quarter: 2012Q3

REPORT INFORMATION
  Report Type: 
  Country: None (occurrence: None)
  Receive Date: 20120823
  Receipt Date: 20120815
  Transmission Date: 20120928
  Serious: Yes (Hospitalization)
  Sender: FDA-Public Use
  Company Number: US-BAYER-201018942NA

PATIENT
  Age: 28 Year
  Sex: Female
  Weight: 90 kg

DRUGS (11)
  1. YASMIN [Suspect]
     Indication: CONTRACEPTION
     Route: 048
     Dates: start: 20071009, end: 20080220
  2. TYLENOL [Concomitant]
     Indication: PAIN
  3. PREVACID [Concomitant]
  4. PERCOCET [Concomitant]
  5. TYLENOL [Concomitant]
     Indication: HEADACHE
     Dosage: UNK UNK, PRN
     Dates: start: 20080201, end: 20081015
  6. PROMETHAZINE [Concomitant]
  7. FAMOTIDINE [Concomitant]
     Dosage: 20 MG, UNK
  8. MULTI-VITAMINS [Concomitant]
     Dates: start: 20080201, end: 20081015
  9. MULTI-VITAMINS [Concomitant]
     Indication: PREGNANCY
     Dates: start: 20080201, end: 20081001
  10. EFFEXOR XR [Concomitant]
     Dosage: 75 MG, UNK
  11. MORPHINE [Concomitant]

REACTIONS (5)
  - PAIN IN EXTREMITY [None]
  - PULMONARY EMBOLISM [None]
  - DYSPNOEA [None]
  - PREGNANCY ON ORAL CONTRACEPTIVE [None]
  - CHEST PAIN [None]
